FAERS Safety Report 23993195 (Version 1)
Quarter: 2024Q2

REPORT INFORMATION
  Report Type: Spontaneous
  Country: CA (occurrence: CA)
  Receive Date: 20240620
  Receipt Date: 20240620
  Transmission Date: 20240716
  Serious: Yes (Hospitalization, Other)
  Sender: FDA-Public Use
  Company Number: CA-AUROBINDO-AUR-APL-2024-022144

PATIENT
  Sex: Female

DRUGS (2)
  1. DULOXETINE [Suspect]
     Active Substance: DULOXETINE
     Indication: Depression
     Dosage: 60 MILLIGRAM, ONCE A DAY
     Route: 065
  2. DIAZEPAM [Suspect]
     Active Substance: DIAZEPAM
     Indication: Depression
     Dosage: 5 MILLIGRAM, ONCE A DAY
     Route: 065

REACTIONS (6)
  - Seizure [Recovered/Resolved]
  - Drug withdrawal convulsions [Unknown]
  - Postictal psychosis [Unknown]
  - Epilepsy [Unknown]
  - Unmasking of previously unidentified disease [Unknown]
  - Product dose omission in error [Unknown]
